FAERS Safety Report 23083653 (Version 1)
Quarter: 2023Q4

REPORT INFORMATION
  Report Type: Spontaneous
  Country: US (occurrence: US)
  Receive Date: 20231019
  Receipt Date: 20231019
  Transmission Date: 20240109
  Serious: Yes (Hospitalization, Other)
  Sender: FDA-Public Use
  Company Number: US-BRACCO-2023US01159

PATIENT
  Age: 65 Year
  Sex: Male

DRUGS (4)
  1. MULTIHANCE [Suspect]
     Active Substance: GADOBENATE DIMEGLUMINE
     Indication: Magnetic resonance imaging
     Dosage: 20 ML, SINGLE
     Route: 042
     Dates: start: 20230313, end: 20230313
  2. NEULUMEX [Concomitant]
     Active Substance: BARIUM SULFATE
     Dosage: EVERY 30 MINUTES FOR A TOTAL OF 3 BOTTLES
     Route: 048
     Dates: start: 20230313, end: 20230313
  3. DIAZEPAM [Concomitant]
     Active Substance: DIAZEPAM
     Indication: Magnetic resonance imaging
     Dosage: 10 MG, 30 MINUTES PRIOR TO MRI
     Dates: start: 20230313, end: 20230313
  4. GLUCAGON [Concomitant]
     Active Substance: GLUCAGON\GLUCAGON HYDROCHLORIDE\WATER
     Indication: Magnetic resonance imaging
     Dosage: 1 MG JUST PRIOR TO EXAM START
     Dates: start: 20230313, end: 20230313

REACTIONS (1)
  - Anaphylactic reaction [Recovered/Resolved]

NARRATIVE: CASE EVENT DATE: 20230313
